FAERS Safety Report 25383745 (Version 1)
Quarter: 2025Q2

REPORT INFORMATION
  Report Type: Report from Study
  Country: CA (occurrence: CA)
  Receive Date: 20250602
  Receipt Date: 20250602
  Transmission Date: 20250716
  Serious: Yes (Other)
  Sender: TAKEDA
  Company Number: CA-TAKEDA-2025TUS050166

PATIENT
  Sex: Male

DRUGS (19)
  1. VEDOLIZUMAB [Suspect]
     Active Substance: VEDOLIZUMAB
     Indication: Colitis ulcerative
  2. DEXILANT [Suspect]
     Active Substance: DEXLANSOPRAZOLE
     Indication: Product used for unknown indication
  3. ALLOPURINOL [Concomitant]
     Active Substance: ALLOPURINOL
  4. Nadol [Concomitant]
  5. SYNTHROID [Concomitant]
     Active Substance: LEVOTHYROXINE SODIUM
  6. FUROSEMIDE [Concomitant]
     Active Substance: FUROSEMIDE
  7. XARELTO [Concomitant]
     Active Substance: RIVAROXABAN
  8. TAMSULOSIN [Concomitant]
     Active Substance: TAMSULOSIN
  9. ATORVASTATIN [Concomitant]
     Active Substance: ATORVASTATIN
  10. UCERIS [Concomitant]
     Active Substance: BUDESONIDE
  11. AMLODIPINE [Concomitant]
     Active Substance: AMLODIPINE BESYLATE
  12. VITAMIN D NOS [Concomitant]
     Active Substance: CHOLECALCIFEROL\ERGOCALCIFEROL
  13. VALSARTAN [Concomitant]
     Active Substance: VALSARTAN
  14. CLOPIDOGREL [Concomitant]
     Active Substance: CLOPIDOGREL BISULFATE
  15. APIXABAN [Concomitant]
     Active Substance: APIXABAN
  16. METOPROLOL [Concomitant]
     Active Substance: METOPROLOL
  17. DUTASTERIDE [Concomitant]
     Active Substance: DUTASTERIDE
  18. Reactine [Concomitant]
  19. MELATONIN [Concomitant]
     Active Substance: MELATONIN

REACTIONS (3)
  - Myocardial infarction [Recovered/Resolved]
  - Infection [Recovered/Resolved]
  - Blood urine present [Recovered/Resolved]
